FAERS Safety Report 5997962-8 (Version None)
Quarter: 2008Q4

REPORT INFORMATION
  Report Type: 
  Country: None (occurrence: None)
  Receive Date: 20081212
  Receipt Date: 20081126
  Transmission Date: 20090506
  Serious: No
  Sender: FDA-Public Use
  Company Number: US-ABBOTT-08P-163-0490099-00

PATIENT
  Sex: Male
  Weight: 71.732 kg

DRUGS (3)
  1. HUMIRA [Suspect]
     Indication: CROHN'S DISEASE
     Dosage: 160MG, STARTER KIT OF 4 PENS
     Route: 058
     Dates: start: 20081018, end: 20081018
  2. HUMIRA [Suspect]
     Indication: DIARRHOEA
     Dates: start: 20081019
  3. FLUOXETINE HYDROCHLORIDE [Concomitant]
     Indication: ANXIETY

REACTIONS (4)
  - HYPOAESTHESIA [None]
  - HYPOAESTHESIA FACIAL [None]
  - HYPOAESTHESIA ORAL [None]
  - PARAESTHESIA [None]
